FAERS Safety Report 25669656 (Version 1)
Quarter: 2025Q3

REPORT INFORMATION
  Report Type: Spontaneous
  Country: GB (occurrence: GB)
  Receive Date: 20250812
  Receipt Date: 20250812
  Transmission Date: 20251021
  Serious: Yes (Life-Threatening, Other)
  Sender: ORGANON
  Company Number: None

PATIENT
  Sex: Male
  Weight: 91 kg

DRUGS (1)
  1. FINASTERIDE [Suspect]
     Active Substance: FINASTERIDE

REACTIONS (1)
  - Suicidal ideation [Recovered/Resolved]
